FAERS Safety Report 7989620-5 (Version None)
Quarter: 2011Q4

REPORT INFORMATION
  Report Type: 
  Country: None (occurrence: None)
  Receive Date: 20111219
  Receipt Date: 20111214
  Transmission Date: 20120403
  Serious: Yes (Hospitalization)
  Sender: FDA-Public Use
  Company Number: BE-GENZYME-CLOF-1001918

PATIENT
  Sex: Male
  Weight: 84 kg

DRUGS (3)
  1. EVOLTRA [Suspect]
     Indication: ACUTE LYMPHOCYTIC LEUKAEMIA
     Dosage: 200 MG, UNK
     Route: 042
     Dates: start: 20110103, end: 20110107
  2. BUSULFAN [Suspect]
     Indication: ACUTE LYMPHOCYTIC LEUKAEMIA
     Dosage: 282 MG, UNK
     Route: 042
     Dates: start: 20110628, end: 20110701
  3. CYCLOPHOSPHAMIDE [Suspect]
     Indication: ACUTE LYMPHOCYTIC LEUKAEMIA
     Dosage: 4380 MG, UNK
     Route: 042
     Dates: start: 20110702, end: 20110703

REACTIONS (1)
  - GASTRIC ANTRAL VASCULAR ECTASIA [None]
